FAERS Safety Report 5323129-2 (Version None)
Quarter: 2007Q2

REPORT INFORMATION
  Report Type: 
  Country: None (occurrence: None)
  Receive Date: 20070220
  Receipt Date: 20061127
  Transmission Date: 20071010
  Serious: No
  Sender: FDA-Public Use
  Company Number: WAES 0611USA07018

PATIENT
  Age: 71 Year
  Sex: Male

DRUGS (3)
  1. JANUVIA [Suspect]
     Indication: DIABETES MELLITUS NON-INSULIN-DEPENDENT
     Dosage: 100 MG/DAILY/PO
     Route: 048
     Dates: start: 20061113
  2. GLUCOPHAGE [Concomitant]
  3. [THERAPY UNSPECIFIED] [Concomitant]

REACTIONS (1)
  - BLOOD GLUCOSE INCREASED [None]
